FAERS Safety Report 18143019 (Version 1)
Quarter: 2020Q3

REPORT INFORMATION
  Report Type: Spontaneous
  Country: US (occurrence: US)
  Receive Date: 20200813
  Receipt Date: 20200813
  Transmission Date: 20201103
  Serious: Yes (Other)
  Sender: FDA-Public Use
  Company Number: US-TEVA-2020-US-1812614

PATIENT
  Age: 7 Decade
  Sex: Male

DRUGS (6)
  1. DEXAMETHASONE. [Suspect]
     Active Substance: DEXAMETHASONE
     Indication: PLASMA CELL LEUKAEMIA
     Dosage: RECEIVED 1 CYCLE AS SALVAGE CHEMOTHERAPY
     Route: 065
  2. CYCLOPHOSPHAMIDE. [Suspect]
     Active Substance: CYCLOPHOSPHAMIDE
     Indication: PLASMA CELL LEUKAEMIA
     Dosage: RECEIVED 1 CYCLE AS SALVAGE CHEMOTHERAPY
     Route: 065
  3. DOXORUBICIN [Suspect]
     Active Substance: DOXORUBICIN
     Indication: PLASMA CELL LEUKAEMIA
     Dosage: RECEIVED 1 CYCLE AS SALVAGE CHEMOTHERAPY
     Route: 065
  4. ETOPOSIDE. [Suspect]
     Active Substance: ETOPOSIDE
     Indication: PLASMA CELL LEUKAEMIA
     Dosage: RECEIVED 1 CYCLE AS SALVAGE CHEMOTHERAPY
     Route: 065
  5. BORTEZOMIB. [Suspect]
     Active Substance: BORTEZOMIB
     Indication: PLASMA CELL LEUKAEMIA
     Dosage: RECEIVED 1 CYCLE AS SALVAGE CHEMOTHERAPY
     Route: 065
  6. CISPLATIN. [Suspect]
     Active Substance: CISPLATIN
     Indication: PLASMA CELL LEUKAEMIA
     Dosage: RECEIVED 1 CYCLE AS SALVAGE CHEMOTHERAPY
     Route: 065

REACTIONS (2)
  - Febrile neutropenia [Unknown]
  - Pancytopenia [Unknown]
